FAERS Safety Report 16074711 (Version 1)
Quarter: 2019Q1

REPORT INFORMATION
  Report Type: Report from Study
  Country: US (occurrence: US)
  Receive Date: 20190314
  Receipt Date: 20190314
  Transmission Date: 20190418
  Serious: Yes (Other)
  Sender: FDA-Public Use
  Company Number: PHEH2019US010501

PATIENT
  Sex: Female

DRUGS (1)
  1. TRAVATAN Z [Suspect]
     Active Substance: TRAVOPROST
     Route: 047

REACTIONS (5)
  - Device damage [Unknown]
  - Intraocular pressure increased [Unknown]
  - Diplopia [Unknown]
  - Eye disorder [Unknown]
  - Struck by lightning [Unknown]
